FAERS Safety Report 9955354 (Version 2)
Quarter: 2014Q1

REPORT INFORMATION
  Report Type: Spontaneous
  Country: GB (occurrence: GB)
  Receive Date: 20140304
  Receipt Date: 20140313
  Transmission Date: 20141002
  Serious: Yes (Life-Threatening, Disabling, Other)
  Sender: FDA-Public Use
  Company Number: GB-PFIZER INC-2014058002

PATIENT
  Age: 31 Year
  Sex: Female
  Weight: 69.85 kg

DRUGS (6)
  1. MIRTAZAPINE [Suspect]
     Indication: DEPRESSION
     Dosage: 15 MG (ONLY TOOK 3 DOSES AS DIRECTED)
     Route: 048
     Dates: start: 20131020, end: 20131023
  2. SERTRALINE HCL [Suspect]
     Dosage: 200 MG, UNK
     Dates: start: 2008
  3. SERTRALINE HCL [Suspect]
     Dosage: 150 MG, UNK
  4. SERTRALINE HCL [Suspect]
     Dosage: 100 MG, UNK
  5. SERTRALINE HCL [Suspect]
     Dosage: 50 MG, UNK
  6. ZINC [Concomitant]
     Dosage: UNK

REACTIONS (46)
  - Shared psychotic disorder [Recovered/Resolved with Sequelae]
  - Mania [Recovered/Resolved with Sequelae]
  - Tachyphrenia [Recovered/Resolved with Sequelae]
  - Suicidal ideation [Recovered/Resolved with Sequelae]
  - Suicidal behaviour [Recovered/Resolved with Sequelae]
  - Abnormal behaviour [Recovering/Resolving]
  - Dysarthria [Recovering/Resolving]
  - Dyspraxia [Not Recovered/Not Resolved]
  - Psychomotor retardation [Not Recovered/Not Resolved]
  - Petit mal epilepsy [Not Recovered/Not Resolved]
  - Hallucination, visual [Not Recovered/Not Resolved]
  - Muscle spasms [Not Recovered/Not Resolved]
  - Thirst [Not Recovered/Not Resolved]
  - Dyskinesia [Not Recovered/Not Resolved]
  - Dysphemia [Not Recovered/Not Resolved]
  - Pain [Not Recovered/Not Resolved]
  - Hypoaesthesia oral [Not Recovered/Not Resolved]
  - Salivary hypersecretion [Not Recovered/Not Resolved]
  - Logorrhoea [Not Recovered/Not Resolved]
  - Speech disorder [Not Recovered/Not Resolved]
  - Activities of daily living impaired [Not Recovered/Not Resolved]
  - Self-injurious ideation [Not Recovered/Not Resolved]
  - Irritability [Not Recovered/Not Resolved]
  - Mood swings [Not Recovered/Not Resolved]
  - Aggression [Not Recovered/Not Resolved]
  - Suicide attempt [Unknown]
  - Thinking abnormal [Not Recovered/Not Resolved]
  - Pruritus [Not Recovered/Not Resolved]
  - Headache [Not Recovered/Not Resolved]
  - Myalgia [Not Recovered/Not Resolved]
  - Miliaria [Not Recovered/Not Resolved]
  - Peripheral coldness [Not Recovered/Not Resolved]
  - Hypoaesthesia [Not Recovered/Not Resolved]
  - Feeling hot [Not Recovered/Not Resolved]
  - Chills [Not Recovered/Not Resolved]
  - Vision blurred [Not Recovered/Not Resolved]
  - Sensory disturbance [Not Recovered/Not Resolved]
  - Hallucination [Not Recovered/Not Resolved]
  - Disorientation [Not Recovered/Not Resolved]
  - Feeling abnormal [Not Recovered/Not Resolved]
  - Fear [Not Recovered/Not Resolved]
  - Frustration [Not Recovered/Not Resolved]
  - Apraxia [Not Recovered/Not Resolved]
  - Headache [Unknown]
  - Withdrawal syndrome [Unknown]
  - Somnambulism [Unknown]
